FAERS Safety Report 22377071 (Version 2)
Quarter: 2024Q1

REPORT INFORMATION
  Report Type: Spontaneous
  Country: JP (occurrence: JP)
  Receive Date: 20230529
  Receipt Date: 20240216
  Transmission Date: 20240410
  Serious: Yes (Other)
  Sender: FDA-Public Use
  Company Number: JP-ABBVIE-5181830

PATIENT
  Sex: Female

DRUGS (1)
  1. RINVOQ [Suspect]
     Active Substance: UPADACITINIB
     Indication: Product used for unknown indication
     Dosage: FORM STRENGTH: 15 MILLIGRAM
     Route: 048

REACTIONS (3)
  - HELLP syndrome [Unknown]
  - Neutrophil count decreased [Recovered/Resolved]
  - Maternal exposure during pregnancy [Unknown]
